FAERS Safety Report 8694699 (Version 2)
Quarter: 2012Q4

REPORT INFORMATION
  Report Type: 
  Country: IT (occurrence: DE)
  Receive Date: 20120731
  Receipt Date: 20120927
  Transmission Date: 20130627
  Serious: Yes (Hospitalization, Other)
  Sender: FDA-Public Use
  Company Number: DE-FRI-1000037337

PATIENT
  Age: 23 Year
  Sex: Female

DRUGS (1)
  1. FOSFOMYCIN [Suspect]
     Indication: URINARY TRACT INFECTION
     Dosage: 3000 mg
     Route: 048
     Dates: start: 20120417, end: 20120417

REACTIONS (1)
  - Hepatic failure [Not Recovered/Not Resolved]
